FAERS Safety Report 21841264 (Version 1)
Quarter: 2023Q1

REPORT INFORMATION
  Report Type: Report from Study
  Country: IN (occurrence: IN)
  Receive Date: 20230110
  Receipt Date: 20230110
  Transmission Date: 20230418
  Serious: Yes (Other)
  Sender: FDA-Public Use
  Company Number: IN-002147023-NVSC2023IN004411

PATIENT
  Sex: Male

DRUGS (7)
  1. SECUKINUMAB [Suspect]
     Active Substance: SECUKINUMAB
     Indication: Psoriatic arthropathy
     Dosage: 150 MG, QMO (FOR 3 MONTHS)
     Route: 058
  2. SECUKINUMAB [Suspect]
     Active Substance: SECUKINUMAB
     Indication: Ankylosing spondylitis
     Dosage: 150 MG, QMO (FOR 90 DAYS)
     Route: 058
  3. SECUKINUMAB [Suspect]
     Active Substance: SECUKINUMAB
     Dosage: UNK (LAST DOSE)
     Route: 065
     Dates: start: 20221209
  4. SULFASALAZINE [Concomitant]
     Active Substance: SULFASALAZINE
     Indication: Product used for unknown indication
     Dosage: 1 DOSAGE FORM, BID (FOR 90 DAYS)
     Route: 048
  5. GEMITROL [Concomitant]
     Indication: Product used for unknown indication
     Dosage: 1 DOSAGE FORM, QD (FOR 90 DAYS)
     Route: 048
  6. GABAPIN NT [Concomitant]
     Indication: Product used for unknown indication
     Dosage: 1 DOSAGE FORM, BID (FOR 90 DAYS)
     Route: 048
  7. ETOSHINE [Concomitant]
     Indication: Product used for unknown indication
     Dosage: 1 MG, QD (BED TIME FOR 15 DAYS)
     Route: 048

REACTIONS (4)
  - Iridocyclitis [Unknown]
  - Sacroiliitis [Unknown]
  - Antinuclear antibody positive [Unknown]
  - Intervertebral disc protrusion [Unknown]
